FAERS Safety Report 11208919 (Version 1)
Quarter: 2015Q2

REPORT INFORMATION
  Report Type: Spontaneous
  Country: US (occurrence: None)
  Receive Date: 20150619
  Receipt Date: 20150619
  Transmission Date: 20150821
  Serious: Yes (Disabling)
  Sender: FDA-Public Use
  Company Number: None

PATIENT
  Age: 71 Year
  Sex: Male
  Weight: 74.84 kg

DRUGS (10)
  1. LITHIUM CARBONATE. [Concomitant]
     Active Substance: LITHIUM CARBONATE
  2. LOW-DOSE ASPIRIN [Concomitant]
     Active Substance: ASPIRIN
  3. VITAMIN B COMPLEX [Concomitant]
     Active Substance: CYANOCOBALAMIN\DEXPANTHENOL\NIACINAMIDE\PYRIDOXINE HYDROCHLORIDE\RIBOFLAVIN 5^-PHOSPHATE SODIUM\THIAMINE HYDROCHLORIDE\VITAMIN B COMPLEX
  4. IBUPROFEN. [Concomitant]
     Active Substance: IBUPROFEN
  5. FLUOXETINE [Concomitant]
     Active Substance: FLUOXETINE\FLUOXETINE HYDROCHLORIDE
  6. SIMVASTATIN. [Concomitant]
     Active Substance: SIMVASTATIN
  7. VITAMIN D [Concomitant]
     Active Substance: CHOLECALCIFEROL
  8. ENALAPRIL [Concomitant]
     Active Substance: ENALAPRIL
  9. CVS STOOL SOFTENER 50MG CVS [Suspect]
     Active Substance: DOCUSATE SODIUM
     Indication: CONSTIPATION
     Route: 048
     Dates: start: 20150617, end: 20150617
  10. FISH OIL [Concomitant]
     Active Substance: FISH OIL

REACTIONS (1)
  - Heat stroke [None]

NARRATIVE: CASE EVENT DATE: 20150618
